FAERS Safety Report 22179237 (Version 1)
Quarter: 2023Q2

REPORT INFORMATION
  Report Type: Spontaneous
  Country: US (occurrence: US)
  Receive Date: 20230406
  Receipt Date: 20230406
  Transmission Date: 20230721
  Serious: Yes (Hospitalization, Other)
  Sender: FDA-Public Use
  Company Number: US-AMNEAL PHARMACEUTICALS-2023-AMRX-01031

PATIENT
  Age: 78 Year
  Sex: Male

DRUGS (1)
  1. RYTARY [Suspect]
     Active Substance: CARBIDOPA\LEVODOPA
     Indication: Parkinson^s disease
     Dosage: 3 (36.25/145 MG) CAPSULES, TID
     Route: 048
     Dates: start: 20230116

REACTIONS (4)
  - Myocardial infarction [Unknown]
  - Pneumonia [Unknown]
  - Intestinal obstruction [Unknown]
  - Nausea [Unknown]

NARRATIVE: CASE EVENT DATE: 20230116
